FAERS Safety Report 14276053 (Version 2)
Quarter: 2018Q1

REPORT INFORMATION
  Report Type: Spontaneous
  Country: US (occurrence: US)
  Receive Date: 20171212
  Receipt Date: 20180109
  Transmission Date: 20180508
  Serious: No
  Sender: FDA-Public Use
  Company Number: US-HETERO CORPORATE-HET2017US00390

PATIENT
  Age: 61 Year
  Sex: Female
  Weight: 69.84 kg

DRUGS (2)
  1. LEVOFLOXACIN. [Suspect]
     Active Substance: LEVOFLOXACIN
     Indication: BRONCHITIS
     Dosage: 750 MG, QD
     Route: 065
     Dates: start: 20171128, end: 20171130
  2. MUCINEX [Concomitant]
     Active Substance: GUAIFENESIN
     Indication: PRODUCT USED FOR UNKNOWN INDICATION
     Route: 065

REACTIONS (4)
  - Headache [Recovered/Resolved]
  - Tremor [Recovered/Resolved]
  - Drug ineffective [Unknown]
  - Dizziness [Recovered/Resolved]

NARRATIVE: CASE EVENT DATE: 20171130
